FAERS Safety Report 9840928 (Version 1)
Quarter: 2013Q4

REPORT INFORMATION
  Report Type: Spontaneous
  Country: US (occurrence: None)
  Receive Date: 20131213
  Receipt Date: 20131213
  Transmission Date: 20140711
  Serious: Yes (Disabling, Other)
  Sender: FDA-Public Use
  Company Number: 2013SCPR006133

PATIENT
  Sex: Female

DRUGS (1)
  1. METOCLOPRAMIDE [Suspect]
     Indication: GASTROOESOPHAGEAL REFLUX DISEASE
     Dosage: UNK/ DAY/ ORAL
     Route: 048

REACTIONS (3)
  - Essential tremor [None]
  - Incorrect drug administration duration [None]
  - Tardive dyskinesia [None]
